FAERS Safety Report 4850485-1 (Version None)
Quarter: 2005Q4

REPORT INFORMATION
  Report Type: 
  Country: None (occurrence: None)
  Receive Date: 20051123
  Receipt Date: 20051017
  Transmission Date: 20060501
  Serious: Yes (Other)
  Sender: FDA-Public Use
  Company Number: 218694

PATIENT
  Age: 22 Year
  Sex: Female
  Weight: 110.5 kg

DRUGS (1)
  1. RAPTIVA [Suspect]
     Indication: PSORIASIS
     Dosage: 1.1 ML, 1/WEEK
     Dates: start: 20040101

REACTIONS (1)
  - PSORIASIS [None]
